FAERS Safety Report 14243734 (Version 3)
Quarter: 2018Q1

REPORT INFORMATION
  Report Type: Report from Study
  Country: CA (occurrence: CA)
  Receive Date: 20171201
  Receipt Date: 20180122
  Transmission Date: 20180508
  Serious: Yes (Hospitalization, Other)
  Sender: FDA-Public Use
  Company Number: CA-GLAXOSMITHKLINE-CA2017GSK144182

PATIENT
  Age: 43 Year
  Sex: Female

DRUGS (3)
  1. MEPOLIZUMAB [Suspect]
     Active Substance: MEPOLIZUMAB
     Indication: ASTHMA
     Dosage: 100 MG, Z
     Route: 042
     Dates: start: 20170908
  2. BREO ELLIPTA [Suspect]
     Active Substance: FLUTICASONE FUROATE\VILANTEROL TRIFENATATE
     Indication: ASTHMA
     Dosage: UNK
  3. MEPOLIZUMAB [Suspect]
     Active Substance: MEPOLIZUMAB
     Dosage: 100 MG, Z
     Route: 042
     Dates: start: 20171124

REACTIONS (13)
  - Dyspnoea [Unknown]
  - Infection [Unknown]
  - Gastric perforation [Unknown]
  - Wheezing [Unknown]
  - Aspiration [Unknown]
  - Emotional disorder [Unknown]
  - Depressed mood [Unknown]
  - Gastric disorder [Unknown]
  - Respiratory tract congestion [Unknown]
  - Headache [Unknown]
  - Anger [Unknown]
  - Chest discomfort [Unknown]
  - Blood count abnormal [Unknown]

NARRATIVE: CASE EVENT DATE: 20171008
